FAERS Safety Report 4333448-4 (Version None)
Quarter: 2004Q1

REPORT INFORMATION
  Report Type: 
  Country: None (occurrence: None)
  Receive Date: 20040330
  Receipt Date: 20040319
  Transmission Date: 20041129
  Serious: Yes (Death, Hospitalization)
  Sender: FDA-Public Use
  Company Number: 200403559

PATIENT
  Age: 17 Year
  Sex: Female

DRUGS (1)
  1. EXTRA STRENGTH TYLENOL [Suspect]
     Dosage: 10 G ONCE PO
     Route: 048
     Dates: start: 20030601

REACTIONS (5)
  - ABDOMINAL PAIN [None]
  - BRAIN DEATH [None]
  - COMPLETED SUICIDE [None]
  - INTENTIONAL OVERDOSE [None]
  - RESPIRATORY FAILURE [None]
